FAERS Safety Report 25315483 (Version 1)
Quarter: 2025Q2

REPORT INFORMATION
  Report Type: Spontaneous
  Country: US (occurrence: US)
  Receive Date: 20250514
  Receipt Date: 20250514
  Transmission Date: 20250717
  Serious: No
  Sender: SANDOZ
  Company Number: US-SANDOZ-SDZ2025US030830

PATIENT
  Age: 46 Year
  Sex: Female

DRUGS (1)
  1. ZARXIO [Suspect]
     Active Substance: FILGRASTIM-SNDZ
     Indication: Breast cancer female
     Dosage: 480 UG, QD (ONE EXTRA DAY OF TREATMENT WAS ADDED. DOSE WENT FROM 10 SYRINGES PER 21 DAYS TO 11 SYRIN
     Route: 058
     Dates: start: 20250419

REACTIONS (1)
  - Drug ineffective [Unknown]

NARRATIVE: CASE EVENT DATE: 20250419
